FAERS Safety Report 6547789-3 (Version None)
Quarter: 2010Q1

REPORT INFORMATION
  Report Type: 
  Country: None (occurrence: None)
  Receive Date: 20100124
  Receipt Date: 20091028
  Transmission Date: 20100710
  Serious: No
  Sender: FDA-Public Use
  Company Number: US-ALEXION-A200900892

PATIENT
  Sex: Female

DRUGS (7)
  1. SOLIRIS [Suspect]
     Indication: PAROXYSMAL NOCTURNAL HAEMOGLOBINURIA
     Dosage: 600 MG, QW
     Route: 042
     Dates: start: 20080915, end: 20081007
  2. SOLIRIS [Suspect]
     Dosage: 900 MG, Q2W
     Route: 042
     Dates: start: 20081013
  3. SYNTHROID [Concomitant]
     Indication: HYPOTHYROIDISM
     Dosage: UNK
     Route: 048
  4. LEXAPRO [Concomitant]
     Indication: HOT FLUSH
     Dosage: 5 MG, QD
     Route: 048
  5. MULTIVITAMIN                       /00831701/ [Concomitant]
     Dosage: UNK
     Route: 048
  6. CALCIUM [Concomitant]
     Dosage: UNK
     Route: 048
  7. ALENDRONAT [Concomitant]
     Dosage: 70 MG, 1XWEEK
     Route: 048

REACTIONS (1)
  - MEMORY IMPAIRMENT [None]
